FAERS Safety Report 20080199 (Version 2)
Quarter: 2021Q4

REPORT INFORMATION
  Report Type: Report from Study
  Country: US (occurrence: US)
  Receive Date: 20211117
  Receipt Date: 20211209
  Transmission Date: 20220303
  Serious: Yes (Hospitalization, Other)
  Sender: FDA-Public Use
  Company Number: US-JAZZ-2021-US-020526

PATIENT
  Sex: Female
  Weight: 107 kg

DRUGS (6)
  1. XYREM [Suspect]
     Active Substance: SODIUM OXYBATE
     Indication: Narcolepsy
     Dosage: 2.25 GRAM, BID
     Route: 048
     Dates: start: 201704, end: 201705
  2. XYREM [Suspect]
     Active Substance: SODIUM OXYBATE
     Indication: Cataplexy
     Dosage: DOSE ADJUSTMENT
     Route: 048
     Dates: start: 201705, end: 201705
  3. XYREM [Suspect]
     Active Substance: SODIUM OXYBATE
     Dosage: 4.5 GRAM, BID
     Route: 048
     Dates: start: 201705, end: 201707
  4. XYREM [Suspect]
     Active Substance: SODIUM OXYBATE
     Dosage: 2.25 GRAM, BID
     Route: 048
     Dates: start: 202003, end: 202004
  5. XYREM [Suspect]
     Active Substance: SODIUM OXYBATE
     Dosage: 3 GRAM, BID
     Route: 048
     Dates: start: 201704, end: 202005
  6. XYREM [Suspect]
     Active Substance: SODIUM OXYBATE
     Dosage: 4.5 GRAM, BID
     Route: 048
     Dates: start: 202005

REACTIONS (18)
  - Mitral valve incompetence [Unknown]
  - Syncope [Unknown]
  - Hypokalaemia [Unknown]
  - Hypotension [Unknown]
  - Iron deficiency [Unknown]
  - Rhinitis allergic [Unknown]
  - Thyroid disorder [Unknown]
  - Generalised anxiety disorder [Unknown]
  - Eating disorder [Unknown]
  - Joint stiffness [Unknown]
  - Joint swelling [Unknown]
  - Vitamin D deficiency [Unknown]
  - Anaemia [Unknown]
  - Micturition urgency [Unknown]
  - Night sweats [Unknown]
  - Headache [Unknown]
  - Autonomic nervous system imbalance [Unknown]
  - C-reactive protein increased [Unknown]
